FAERS Safety Report 8350649-9 (Version None)
Quarter: 2012Q2

REPORT INFORMATION
  Report Type: 
  Country: None (occurrence: None)
  Receive Date: 20120510
  Receipt Date: 20120425
  Transmission Date: 20120825
  Serious: Yes (Other)
  Sender: FDA-Public Use
  Company Number: US-ENDO PHARMACEUTICALS INC.-OPCR20120486

PATIENT
  Sex: Female

DRUGS (1)
  1. OPANA ER [Suspect]
     Indication: PRODUCT USED FOR UNKNOWN INDICATION
     Dosage: UNK
     Route: 048
     Dates: start: 20120101

REACTIONS (2)
  - SWOLLEN TONGUE [None]
  - MEDICATION ERROR [None]
